FAERS Safety Report 8080169-0 (Version None)
Quarter: 2012Q1

REPORT INFORMATION
  Report Type: 
  Country: None (occurrence: None)
  Receive Date: 20120130
  Receipt Date: 20120120
  Transmission Date: 20120608
  Serious: Yes (Other)
  Sender: FDA-Public Use
  Company Number: US-BAYER-2011-036394

PATIENT
  Age: 26 Year
  Sex: Female
  Weight: 96.599 kg

DRUGS (4)
  1. REGLAN [Concomitant]
     Indication: VOMITING
     Dosage: UNK
     Dates: start: 20061202
  2. AUGMENTIN '125' [Concomitant]
     Indication: BRONCHITIS
  3. YASMIN [Suspect]
     Indication: CONTRACEPTION
     Dosage: UNK
     Dates: start: 20060101, end: 20070101
  4. AUGMENTIN '125' [Concomitant]
     Indication: SINUSITIS
     Dosage: 500 MG, TID
     Dates: start: 20061115

REACTIONS (3)
  - GALLBLADDER DISORDER [None]
  - CHOLECYSTITIS ACUTE [None]
  - PAIN [None]
